FAERS Safety Report 6882830-X (Version None)
Quarter: 2010Q3

REPORT INFORMATION
  Report Type: 
  Country: None (occurrence: None)
  Receive Date: 20100729
  Receipt Date: 20100720
  Transmission Date: 20110219
  Serious: Yes (Hospitalization)
  Sender: FDA-Public Use
  Company Number: US-ROCHE-716989

PATIENT
  Sex: Female

DRUGS (2)
  1. AVASTIN [Suspect]
     Dosage: FREQUENCY: EVERY CYCLE.
     Route: 041
  2. TAXOTERE [Suspect]
     Route: 065

REACTIONS (2)
  - CELLULITIS [None]
  - ONYCHOLYSIS [None]
